FAERS Safety Report 23263531 (Version 1)
Quarter: 2023Q4

REPORT INFORMATION
  Report Type: Spontaneous
  Country: US (occurrence: US)
  Receive Date: 20231205
  Receipt Date: 20231205
  Transmission Date: 20240110
  Serious: No
  Sender: FDA-Public Use
  Company Number: US-INSUD PHARMA-2311US08415

PATIENT

DRUGS (1)
  1. CLOBETASOL [Suspect]
     Active Substance: CLOBETASOL
     Indication: Rash papular
     Dosage: UNK, USED FOR 4.5 DAYS
     Route: 061
     Dates: start: 202311, end: 202311

REACTIONS (6)
  - Skin wrinkling [Not Recovered/Not Resolved]
  - Skin striae [Not Recovered/Not Resolved]
  - Application site reaction [Not Recovered/Not Resolved]
  - Therapeutic product effect incomplete [Not Recovered/Not Resolved]
  - Off label use [Unknown]
  - Incorrect product administration duration [Unknown]

NARRATIVE: CASE EVENT DATE: 20231101
